FAERS Safety Report 7948821-2 (Version None)
Quarter: 2011Q4

REPORT INFORMATION
  Report Type: 
  Country: None (occurrence: None)
  Receive Date: 20111130
  Receipt Date: 20111117
  Transmission Date: 20120403
  Serious: Yes (Other)
  Sender: FDA-Public Use
  Company Number: PHHY2011AU102848

PATIENT
  Sex: Male

DRUGS (1)
  1. CLOZARIL [Suspect]
     Dates: start: 19950922, end: 20061218

REACTIONS (3)
  - HEPATITIS C [None]
  - NEUTROPENIA [None]
  - SPLENOMEGALY [None]
